FAERS Safety Report 5202616-1 (Version None)
Quarter: 2006Q4

REPORT INFORMATION
  Report Type: 
  Country: None (occurrence: None)
  Receive Date: 20061016
  Receipt Date: 20060809
  Transmission Date: 20070319
  Serious: No
  Sender: FDA-Public Use
  Company Number: 2006SP002956

PATIENT
  Age: 75 Year
  Sex: Female
  Weight: 104.3273 kg

DRUGS (5)
  1. LUNESTA [Suspect]
     Indication: POOR QUALITY SLEEP
     Dosage: 3 MG; ORAL
     Route: 048
     Dates: start: 20060801
  2. METOPROLOL SUCCINATE [Concomitant]
  3. PLAVIX [Concomitant]
  4. PREVACID [Concomitant]
  5. LASIX [Concomitant]

REACTIONS (1)
  - DYSGEUSIA [None]
